FAERS Safety Report 9365829 (Version 1)
Quarter: 2013Q2

REPORT INFORMATION
  Report Type: Spontaneous
  Country: ES (occurrence: ES)
  Receive Date: 20130625
  Receipt Date: 20130625
  Transmission Date: 20140414
  Serious: Yes (Hospitalization)
  Sender: FDA-Public Use
  Company Number: PHHY2013ES062505

PATIENT
  Age: 47 Year
  Sex: Male

DRUGS (4)
  1. LORAZEPAM [Suspect]
     Dosage: 15 MG, PER DAY
  2. CLOZAPINE [Suspect]
     Indication: SCHIZOPHRENIA
     Dosage: 600 MG, PER DAY
  3. BIPERIDEN [Suspect]
     Dosage: 4 MG, PER DAY
  4. RISPERIDONE [Concomitant]

REACTIONS (8)
  - Colitis ischaemic [Recovered/Resolved]
  - Fibrosis [Recovered/Resolved]
  - Rectal haemorrhage [Recovered/Resolved]
  - Pyrexia [Recovered/Resolved]
  - Diarrhoea [Recovered/Resolved]
  - Abdominal tenderness [Recovered/Resolved]
  - Gastric ulcer [Recovered/Resolved]
  - Localised oedema [Recovered/Resolved]
